FAERS Safety Report 13928677 (Version 1)
Quarter: 2017Q3

REPORT INFORMATION
  Report Type: Spontaneous
  Country: AR (occurrence: AR)
  Receive Date: 20170901
  Receipt Date: 20170901
  Transmission Date: 20171127
  Serious: Yes (Other)
  Sender: FDA-Public Use
  Company Number: AR-PFIZER INC-2017373501

PATIENT
  Age: 74 Year
  Sex: Female

DRUGS (1)
  1. SUTENT [Suspect]
     Active Substance: SUNITINIB MALATE
     Indication: METASTATIC RENAL CELL CARCINOMA
     Dosage: 50 MG, DAILY (4X2 SCHEME) 28 DAYS OF TREATMENT AND REST 14DAYS
     Dates: start: 20170623, end: 201708

REACTIONS (1)
  - Nodule [Unknown]

NARRATIVE: CASE EVENT DATE: 201708
